FAERS Safety Report 15131332 (Version 3)
Quarter: 2018Q3

REPORT INFORMATION
  Report Type: Report from Study
  Country: None (occurrence: IL)
  Receive Date: 20180711
  Receipt Date: 20180904
  Transmission Date: 20181010
  Serious: Yes (Hospitalization)
  Sender: FDA-Public Use
  Company Number: IL-ABBVIE-18P-082-2364104-00

PATIENT
  Age: 77 Year
  Sex: Female
  Weight: 86 kg

DRUGS (13)
  1. VENETOCLAX. [Suspect]
     Active Substance: VENETOCLAX
     Dosage: 28 DAY CYCLE
     Route: 048
     Dates: start: 20180705
  2. OMEPRAZOLE. [Concomitant]
     Active Substance: OMEPRAZOLE
     Indication: PROPHYLAXIS
     Route: 048
     Dates: start: 20180308
  3. VALACICLOVIR [Concomitant]
     Active Substance: VALACYCLOVIR HYDROCHLORIDE
     Indication: TONGUE DISORDER
     Route: 048
     Dates: start: 20180522
  4. VENETOCLAX. [Suspect]
     Active Substance: VENETOCLAX
     Indication: ACUTE MYELOID LEUKAEMIA
     Dosage: 28 DAY CYCLE
     Route: 048
     Dates: start: 20180404, end: 20180404
  5. AMLODIPINE [Concomitant]
     Active Substance: AMLODIPINE BESYLATE
     Indication: HYPERTENSION
     Route: 048
     Dates: start: 20180320
  6. VENETOCLAX. [Suspect]
     Active Substance: VENETOCLAX
     Dosage: 28 DAY CYCLE
     Route: 048
     Dates: start: 20180406, end: 20180422
  7. VENETOCLAX. [Suspect]
     Active Substance: VENETOCLAX
     Dosage: 28 DAY CYCLE
     Route: 048
     Dates: start: 20180405, end: 20180405
  8. ALLOPURINOL. [Concomitant]
     Active Substance: ALLOPURINOL
     Indication: PROPHYLAXIS
     Route: 048
     Dates: start: 20180325, end: 20180411
  9. ACYCLOVIR. [Concomitant]
     Active Substance: ACYCLOVIR
     Indication: ANTIVIRAL PROPHYLAXIS
     Route: 048
     Dates: start: 20180408
  10. NORMAL SALINE SOLUTION (0.9% SODIUM CHLORIDE) [Concomitant]
     Indication: PROPHYLAXIS
     Route: 042
     Dates: start: 20180329, end: 20180410
  11. VENETOCLAX. [Suspect]
     Active Substance: VENETOCLAX
     Dosage: 28 DAY CYCLE
     Route: 048
     Dates: start: 20180423, end: 20180605
  12. AZACITIDINE. [Suspect]
     Active Substance: AZACITIDINE
     Indication: ACUTE MYELOID LEUKAEMIA
     Dosage: DAYS 1?7 OF 28 DAY CYCLE
     Route: 058
     Dates: start: 20180404
  13. LAMIVUDINE. [Concomitant]
     Active Substance: LAMIVUDINE
     Indication: HEPATITIS B
     Route: 048
     Dates: start: 20180320

REACTIONS (2)
  - Febrile neutropenia [Recovered/Resolved]
  - Ileus [Recovered/Resolved]

NARRATIVE: CASE EVENT DATE: 20180522
